FAERS Safety Report 6678142-X (Version None)
Quarter: 2010Q2

REPORT INFORMATION
  Report Type: 
  Country: None (occurrence: None)
  Receive Date: 20100409
  Receipt Date: 20100409
  Transmission Date: 20101027
  Serious: No
  Sender: FDA-Public Use
  Company Number: None

PATIENT
  Age: 45 Year
  Sex: Female
  Weight: 55.7924 kg

DRUGS (1)
  1. LUTERA -IN-5342/S- -NOT GIVEN- WATSONPHARMA [Suspect]
     Indication: CONTRACEPTION
     Dosage: 1 PILL 1/DAY PO
     Route: 048
     Dates: start: 20100407, end: 20100407

REACTIONS (6)
  - HYPOAESTHESIA [None]
  - HYPOAESTHESIA ORAL [None]
  - PARAESTHESIA ORAL [None]
  - POSTNASAL DRIP [None]
  - PRURITUS [None]
  - SINUS HEADACHE [None]
